FAERS Safety Report 5763887-6 (Version None)
Quarter: 2008Q2

REPORT INFORMATION
  Report Type: 
  Country: None (occurrence: None)
  Receive Date: 20080602
  Receipt Date: 20080218
  Transmission Date: 20081010
  Serious: Yes (Other)
  Sender: FDA-Public Use
  Company Number: PHEH2007US15765

PATIENT
  Sex: Male
  Weight: 122 kg

DRUGS (13)
  1. TEKTURNA [Suspect]
     Indication: HYPERTENSION
     Dosage: 150 MG, QD, ORAL ; 300 MG, QD, ORAL ; 150 MG, QD, ORAL
     Route: 048
     Dates: start: 20070925, end: 20071009
  2. TEKTURNA [Suspect]
     Indication: HYPERTENSION
     Dosage: 150 MG, QD, ORAL ; 300 MG, QD, ORAL ; 150 MG, QD, ORAL
     Route: 048
     Dates: start: 20071010, end: 20071101
  3. TEKTURNA [Suspect]
     Indication: HYPERTENSION
     Dosage: 150 MG, QD, ORAL ; 300 MG, QD, ORAL ; 150 MG, QD, ORAL
     Route: 048
     Dates: start: 20071102
  4. TEKTURNA [Suspect]
     Indication: HYPERTENSION
     Dosage: 150 MG, QD, ORAL ; 300 MG, QD, ORAL ; 150 MG, QD, ORAL
     Route: 048
     Dates: start: 20071201
  5. SPIRONOLACTONE [Concomitant]
  6. JANUVIA (SITAGLIPTIN PHOSPHATE) [Concomitant]
  7. AMARYL [Concomitant]
  8. TRENTAL [Concomitant]
  9. CLONIDINE [Concomitant]
  10. COREG [Concomitant]
  11. METFORMIN HCL [Concomitant]
  12. LASIX [Concomitant]
  13. LIPITOR [Concomitant]

REACTIONS (3)
  - DYSPNOEA [None]
  - OEDEMA [None]
  - WEIGHT INCREASED [None]
